FAERS Safety Report 19847383 (Version 1)
Quarter: 2021Q3

REPORT INFORMATION
  Report Type: Spontaneous
  Country: DE (occurrence: DE)
  Receive Date: 20210917
  Receipt Date: 20210917
  Transmission Date: 20211014
  Serious: Yes (Hospitalization)
  Sender: FDA-Public Use
  Company Number: DE-TEVA-2021-DE-1952602

PATIENT
  Age: 75 Year
  Sex: Male
  Weight: 98 kg

DRUGS (7)
  1. CLOPIDOGREL [Concomitant]
     Active Substance: CLOPIDOGREL BISULFATE
     Dosage: 75 MILLIGRAM DAILY; 1?0?0?0
     Route: 048
  2. FLUTICASON/SALMETEROL [Concomitant]
     Dosage: 2 DOSAGE FORMS DAILY; 500 | 50 UG, 1?0?1?0,
     Route: 055
  3. SIMVASTATIN. [Concomitant]
     Active Substance: SIMVASTATIN
     Dosage: 40 MILLIGRAM DAILY; 0?0?1?0
     Route: 048
  4. PRAMIPEXOL [Suspect]
     Active Substance: PRAMIPEXOLE
     Dosage: 1.05 MILLIGRAM DAILY; 1?1?1?0
     Route: 048
  5. TIOTROPIUMBROMID [Concomitant]
     Dosage: 2.5 UG, REQUIREMENT,
     Route: 055
  6. OMEPRAZOL [Concomitant]
     Active Substance: OMEPRAZOLE
     Dosage: 20 MILLIGRAM DAILY; 1?0?0?0
     Route: 048
  7. CARBIDOPA/LEVODOPA [Suspect]
     Active Substance: CARBIDOPA\LEVODOPA
     Dosage: 2 DOSAGE FORMS DAILY; 25|100 MG, 1?0?1?0
     Route: 048

REACTIONS (2)
  - Visual impairment [Unknown]
  - Blindness transient [Unknown]

NARRATIVE: CASE EVENT DATE: 20210115
